FAERS Safety Report 6397931-2 (Version None)
Quarter: 2009Q4

REPORT INFORMATION
  Report Type: 
  Country: None (occurrence: None)
  Receive Date: 20091013
  Receipt Date: 20090929
  Transmission Date: 20100525
  Serious: Yes (Hospitalization)
  Sender: FDA-Public Use
  Company Number: US-JNJFOC-20091002384

PATIENT
  Age: 13 Month
  Sex: Female
  Weight: 9.98 kg

DRUGS (2)
  1. TYLENOL (CAPLET) [Suspect]
     Route: 048
  2. TYLENOL (CAPLET) [Suspect]
     Indication: PYREXIA
     Dosage: 180 MG EVERY 4 TO 6 HOURS AS NEEDED
     Route: 048

REACTIONS (6)
  - APPENDICITIS [None]
  - DIARRHOEA [None]
  - PYREXIA [None]
  - TRANSMISSION OF AN INFECTIOUS AGENT VIA A MEDICINAL PRODUCT [None]
  - VOMITING [None]
  - WHITE BLOOD CELL COUNT INCREASED [None]
